FAERS Safety Report 9169905 (Version 2)
Quarter: 2013Q2

REPORT INFORMATION
  Report Type: Spontaneous
  Country: US (occurrence: None)
  Receive Date: 20130307
  Receipt Date: 20130514
  Transmission Date: 20140414
  Serious: Yes (Other)
  Sender: FDA-Public Use
  Company Number: MC201300110

PATIENT
  Sex: Female
  Weight: 60 kg

DRUGS (2)
  1. ANGIOMAX, ANGIOX (BIVALIRUDIN) INJECTION [Suspect]
     Indication: PERCUTANEOUS CORONARY INTERVENTION
     Route: 040
     Dates: start: 2012, end: 2012
  2. PLAVIX (CLOPIDOGREL SULFATE) [Suspect]
     Dosage: POST PROCEDURE

REACTIONS (3)
  - Medication error [None]
  - Device occlusion [None]
  - Drug administration error [None]
